FAERS Safety Report 6593814-3 (Version None)
Quarter: 2010Q1

REPORT INFORMATION
  Report Type: 
  Country: None (occurrence: None)
  Receive Date: 20100222
  Receipt Date: 20100215
  Transmission Date: 20100710
  Serious: Yes (Hospitalization)
  Sender: FDA-Public Use
  Company Number: JP-BAYER-200812246BYL

PATIENT
  Age: 62 Year
  Sex: Male
  Weight: 56 kg

DRUGS (10)
  1. NEXAVAR [Suspect]
     Indication: RENAL CELL CARCINOMA
     Dosage: UNIT DOSE: 200 MG
     Route: 048
     Dates: start: 20080806, end: 20080819
  2. NEXAVAR [Suspect]
     Dosage: UNIT DOSE: 200 MG
     Route: 048
     Dates: start: 20080827, end: 20081021
  3. NEXAVAR [Suspect]
     Dosage: UNIT DOSE: 200 MG
     Route: 048
     Dates: start: 20081022, end: 20090317
  4. NEXAVAR [Suspect]
     Dosage: UNIT DOSE: 200 MG
     Route: 048
     Dates: start: 20090707
  5. NEXAVAR [Suspect]
     Dosage: TOTAL DAILY DOSE: 800 MG  UNIT DOSE: 200 MG
     Route: 048
     Dates: start: 20090318, end: 20090706
  6. CRAVIT [Suspect]
     Indication: PYREXIA
     Dosage: UNIT DOSE: 100 MG
     Route: 048
     Dates: start: 20080822, end: 20080829
  7. MUCOSTA [Concomitant]
     Route: 048
     Dates: start: 20080820, end: 20080827
  8. SALOBEL [Concomitant]
     Route: 048
     Dates: start: 20080825
  9. BEZATOL SR [Concomitant]
     Route: 048
     Dates: start: 20080825
  10. POSTERISAN [Concomitant]
     Route: 061
     Dates: start: 20080911, end: 20080916

REACTIONS (7)
  - C-REACTIVE PROTEIN INCREASED [None]
  - DIARRHOEA [None]
  - HEPATIC FUNCTION ABNORMAL [None]
  - HYPERTENSION [None]
  - HYPOPHOSPHATAEMIA [None]
  - PALMAR-PLANTAR ERYTHRODYSAESTHESIA SYNDROME [None]
  - PYREXIA [None]
